FAERS Safety Report 8485331-0 (Version None)
Quarter: 2012Q2

REPORT INFORMATION
  Report Type: 
  Country: None (occurrence: None)
  Receive Date: 20120627
  Receipt Date: 20120627
  Transmission Date: 20120825
  Serious: Yes (Hospitalization)
  Sender: FDA-Public Use
  Company Number: None

PATIENT
  Age: 62 Year
  Sex: Male

DRUGS (1)
  1. IOPAMIDOL [Suspect]
     Dates: start: 20120321

REACTIONS (3)
  - PULSE ABSENT [None]
  - STRIDOR [None]
  - ANAPHYLACTIC REACTION [None]
